FAERS Safety Report 9486457 (Version 1)
Quarter: 2013Q3

REPORT INFORMATION
  Report Type: Spontaneous
  Country: CH (occurrence: CH)
  Receive Date: 20130829
  Receipt Date: 20130829
  Transmission Date: 20140515
  Serious: Yes (Other)
  Sender: FDA-Public Use
  Company Number: CH-ASTRAZENECA-2013SE65283

PATIENT
  Age: 50 Year
  Sex: Male
  Weight: 153.6 kg

DRUGS (7)
  1. ESOMEP MUPS [Suspect]
     Route: 048
  2. VANCOCIN [Suspect]
     Indication: STAPHYLOCOCCAL SEPSIS
     Dosage: INITIAL DOSE: 4000MG
     Route: 041
     Dates: start: 20130709
  3. VANCOCIN [Suspect]
     Indication: STAPHYLOCOCCAL SEPSIS
     Route: 041
     Dates: start: 20130709, end: 20130710
  4. FLOXAPEN [Suspect]
     Indication: STAPHYLOCOCCAL SEPSIS
     Route: 041
     Dates: start: 20130709
  5. ALDACTONE [Suspect]
     Route: 048
  6. METHADON [Concomitant]
     Route: 048
  7. FRAGMIN [Concomitant]
     Route: 048

REACTIONS (1)
  - Renal failure [Not Recovered/Not Resolved]
